FAERS Safety Report 11062144 (Version 1)
Quarter: 2015Q2

REPORT INFORMATION
  Report Type: Spontaneous
  Country: US (occurrence: US)
  Receive Date: 20150424
  Receipt Date: 20150424
  Transmission Date: 20150821
  Serious: Yes (Hospitalization)
  Sender: FDA-Public Use
  Company Number: US-ALKERMES INC.-ALK-2014-003042

PATIENT

DRUGS (1)
  1. VIVITROL [Suspect]
     Active Substance: NALTREXONE
     Indication: ALCOHOLISM
     Dosage: 380 MG, UNK
     Route: 030

REACTIONS (3)
  - Alcohol detoxification [Not Recovered/Not Resolved]
  - Pancreatitis [Not Recovered/Not Resolved]
  - General symptom [Not Recovered/Not Resolved]
